FAERS Safety Report 20045362 (Version 2)
Quarter: 2021Q4

REPORT INFORMATION
  Report Type: Spontaneous
  Country: US (occurrence: US)
  Receive Date: 20211108
  Receipt Date: 20211124
  Transmission Date: 20220303
  Serious: Yes (Other)
  Sender: FDA-Public Use
  Company Number: US-TEVA-2021-US-1975079

PATIENT
  Age: 37 Year
  Sex: Male

DRUGS (6)
  1. OLANZAPINE [Interacting]
     Active Substance: OLANZAPINE
     Indication: Schizoaffective disorder
     Route: 048
  2. OLANZAPINE [Interacting]
     Active Substance: OLANZAPINE
     Indication: Drug use disorder
     Dosage: 20 MILLIGRAM DAILY;
     Route: 048
  3. OLANZAPINE [Interacting]
     Active Substance: OLANZAPINE
     Dosage: REDUCED TO 5MG IN THE MORNING AND 15MG IN THE EVENING
     Route: 048
  4. BUPRENORPHINE [Suspect]
     Active Substance: BUPRENORPHINE
     Indication: Schizoaffective disorder
     Route: 065
     Dates: start: 2020
  5. BUPRENORPHINE [Suspect]
     Active Substance: BUPRENORPHINE
     Indication: Drug use disorder
     Dosage: 12 MILLIGRAM DAILY;
     Route: 065
     Dates: start: 2020
  6. PSYLLIUM [Interacting]
     Active Substance: PLANTAGO SEED
     Indication: Constipation
     Dosage: 6 GRAM DAILY;
     Route: 065

REACTIONS (3)
  - Constipation [Unknown]
  - Drug interaction [Unknown]
  - Drug ineffective [Unknown]
